FAERS Safety Report 10382224 (Version 2)
Quarter: 2014Q3

REPORT INFORMATION
  Report Type: Spontaneous
  Country: US (occurrence: US)
  Receive Date: 20140813
  Receipt Date: 20140822
  Transmission Date: 20150326
  Serious: Yes (Hospitalization)
  Sender: FDA-Public Use
  Company Number: US-BAXTER-2014BAX047150

PATIENT
  Age: 21 Year
  Sex: Female

DRUGS (6)
  1. 0.9% SODIUM CHLORIDE INJECTION, USP IN MINI-BAG PLUS CONTAINER [Suspect]
     Active Substance: SODIUM CHLORIDE
     Indication: IMPAIRED HEALING
  2. INVANZ [Suspect]
     Active Substance: ERTAPENEM SODIUM
     Indication: IMPAIRED HEALING
  3. 0.9% SODIUM CHLORIDE INJECTION, USP IN MINI-BAG PLUS CONTAINER [Suspect]
     Active Substance: SODIUM CHLORIDE
     Indication: ARTHRITIS INFECTIVE
     Route: 042
     Dates: start: 20140604, end: 201407
  4. INVANZ [Suspect]
     Active Substance: ERTAPENEM SODIUM
     Indication: ARTHRITIS INFECTIVE
     Route: 042
     Dates: start: 20140604, end: 201407
  5. 0.9% SODIUM CHLORIDE INJECTION, USP IN MINI-BAG PLUS CONTAINER [Suspect]
     Active Substance: SODIUM CHLORIDE
     Indication: ENTEROBACTER TEST POSITIVE
  6. INVANZ [Suspect]
     Active Substance: ERTAPENEM SODIUM
     Indication: ENTEROBACTER TEST POSITIVE

REACTIONS (1)
  - Infusion site swelling [Recovered/Resolved]

NARRATIVE: CASE EVENT DATE: 20140621
